FAERS Safety Report 6888172-0 (Version None)
Quarter: 2010Q3

REPORT INFORMATION
  Report Type: 
  Country: None (occurrence: None)
  Receive Date: 20100726
  Receipt Date: 20100709
  Transmission Date: 20110219
  Serious: Yes (Other)
  Sender: FDA-Public Use
  Company Number: 1000009329

PATIENT
  Age: 78 Year
  Sex: Female
  Weight: 50 kg

DRUGS (7)
  1. ESCITALOPRAM [Suspect]
     Indication: DEPRESSION
     Dosage: 1 DOSAGE FORMS (1 DOSAGE FORMS, 1 IN 1 D), ORAL
     Route: 048
     Dates: start: 20090715, end: 20090917
  2. HYDROCORTISONE [Concomitant]
  3. LERCAN [Concomitant]
  4. FLECAINIDE ACETATE [Concomitant]
  5. FRACTAL [Concomitant]
  6. KARDEGIC [Concomitant]
  7. OROCAL D3 [Concomitant]

REACTIONS (6)
  - DISSOCIATIVE IDENTITY DISORDER [None]
  - DRUG INTOLERANCE [None]
  - FEELING ABNORMAL [None]
  - SCHIZOPHRENIA [None]
  - SUICIDAL IDEATION [None]
  - TREMOR [None]
